FAERS Safety Report 12134154 (Version 1)
Quarter: 2016Q1

REPORT INFORMATION
  Report Type: Spontaneous
  Country: US (occurrence: US)
  Receive Date: 20160301
  Receipt Date: 20160301
  Transmission Date: 20160526
  Serious: No
  Sender: FDA-Public Use
  Company Number: US-SWAN PHARMACEUTICALS, LLC-2015MYN000073

PATIENT
  Age: 65 Year
  Sex: Male
  Weight: 128.8 kg

DRUGS (9)
  1. AMIODARONE HYDROCHLORIDE. [Suspect]
     Active Substance: AMIODARONE HYDROCHLORIDE
     Indication: PRODUCT USED FOR UNKNOWN INDICATION
     Dosage: 200 MG, QD
     Dates: end: 201504
  2. TOPROL XL [Concomitant]
     Active Substance: METOPROLOL SUCCINATE
  3. JUXTAPID [Suspect]
     Active Substance: LOMITAPIDE MESYLATE
     Indication: TYPE IIA HYPERLIPIDAEMIA
     Dosage: 5 MG, UNK
     Dates: start: 20150414, end: 20150427
  4. ASPIRIN                            /00002701/ [Concomitant]
     Active Substance: ASPIRIN
  5. FISH OIL [Concomitant]
     Active Substance: FISH OIL
  6. KRILL OMEGA RED OIL [Concomitant]
  7. ELIQUIS [Concomitant]
     Active Substance: APIXABAN
  8. OSTEO-BI-FLEX [Concomitant]
  9. LOSARTAN. [Concomitant]
     Active Substance: LOSARTAN

REACTIONS (1)
  - Liver function test increased [Unknown]

NARRATIVE: CASE EVENT DATE: 20150427
